FAERS Safety Report 8192325 (Version 3)
Quarter: 2013Q3

REPORT INFORMATION
  Report Type: Spontaneous
  Country: US (occurrence: US)
  Receive Date: 20111020
  Receipt Date: 20130812
  Transmission Date: 20140515
  Serious: Yes (Hospitalization)
  Sender: FDA-Public Use
  Company Number: US-B.I. PHARMACEUTICALS,INC./RIDGEFIELD-2011-BP-24488BP

PATIENT
  Age: 83 Year
  Sex: Male
  Weight: 65 kg

DRUGS (5)
  1. PRADAXA [Suspect]
     Indication: ATRIAL FIBRILLATION
     Dosage: 300 MG
     Route: 048
     Dates: start: 20110923, end: 20110924
  2. PLAVIX [Concomitant]
     Route: 048
  3. ASPIRIN [Concomitant]
     Route: 048
  4. MULTAQ [Concomitant]
     Dosage: 800 MG
     Dates: start: 20001201
  5. FUROSEMIDE [Concomitant]
     Dosage: 20 MG

REACTIONS (2)
  - Gastrointestinal haemorrhage [Recovered/Resolved]
  - Haematochezia [Recovered/Resolved]
